FAERS Safety Report 5692313-0 (Version None)
Quarter: 2008Q1

REPORT INFORMATION
  Report Type: 
  Country: None (occurrence: None)
  Receive Date: 20080331
  Receipt Date: 20080314
  Transmission Date: 20080703
  Serious: Yes (Other)
  Sender: FDA-Public Use
  Company Number: 8027138

PATIENT
  Age: 8 Year
  Sex: Male
  Weight: 29 kg

DRUGS (5)
  1. KEPPRA [Suspect]
     Indication: CONVULSION
     Dosage: 375 MG 2/D PO
     Route: 048
     Dates: start: 20050801
  2. KEPPRA [Suspect]
     Indication: LENNOX-GASTAUT SYNDROME
     Dosage: 375 MG 2/D PO
     Route: 048
     Dates: start: 20050801
  3. TOPAMAX [Concomitant]
  4. PETNIDAN [Concomitant]
  5. NITOMAN [Concomitant]

REACTIONS (1)
  - THROMBOCYTOPENIA [None]
